FAERS Safety Report 4668089-2 (Version None)
Quarter: 2005Q2

REPORT INFORMATION
  Report Type: 
  Country: None (occurrence: None)
  Receive Date: 20050520
  Receipt Date: 20050413
  Transmission Date: 20051028
  Serious: Yes (Other)
  Sender: FDA-Public Use
  Company Number: US-MERCK-0504USA01986

PATIENT
  Age: 38 Year
  Sex: Female

DRUGS (1)
  1. CANCIDAS [Suspect]
     Indication: DRUG ADMINISTRATION ERROR
     Route: 061

REACTIONS (5)
  - ACCIDENTAL EXPOSURE [None]
  - BURNING SENSATION [None]
  - HYPERSENSITIVITY [None]
  - PHOTOSENSITIVITY REACTION [None]
  - PRURITUS GENERALISED [None]
